FAERS Safety Report 17894177 (Version 1)
Quarter: 2020Q2

REPORT INFORMATION
  Report Type: Spontaneous
  Country: CA (occurrence: CA)
  Receive Date: 20200615
  Receipt Date: 20200615
  Transmission Date: 20200714
  Serious: Yes (Life-Threatening, Other)
  Sender: FDA-Public Use
  Company Number: CA-GLAXOSMITHKLINE-CA2020AMR098250

PATIENT
  Sex: Female

DRUGS (1)
  1. LAMOTRIGINE. [Suspect]
     Active Substance: LAMOTRIGINE
     Indication: PRODUCT USED FOR UNKNOWN INDICATION
     Dosage: 25 MG
     Route: 048

REACTIONS (9)
  - Blood pressure increased [Unknown]
  - Dysphagia [Unknown]
  - Eye movement disorder [Unknown]
  - Resuscitation [Unknown]
  - Rash erythematous [Unknown]
  - Dizziness [Unknown]
  - Swollen tongue [Unknown]
  - Dyskinesia [Unknown]
  - Unresponsive to stimuli [Unknown]
